FAERS Safety Report 6380181-3 (Version None)
Quarter: 2009Q3

REPORT INFORMATION
  Report Type: 
  Country: None (occurrence: None)
  Receive Date: 20090929
  Receipt Date: 20090921
  Transmission Date: 20100115
  Serious: Yes (Other)
  Sender: FDA-Public Use
  Company Number: US-ELI_LILLY_AND_COMPANY-US200909004938

PATIENT
  Sex: Female
  Weight: 107.94 kg

DRUGS (8)
  1. BYETTA [Suspect]
     Indication: TYPE 2 DIABETES MELLITUS
     Dosage: 5 UG, 2/D
     Route: 058
     Dates: start: 20060101, end: 20060101
  2. BYETTA [Suspect]
     Dosage: 10 UG, 2/D
     Route: 058
     Dates: start: 20060101, end: 20060101
  3. BYETTA [Suspect]
     Dosage: 5 UG, 2/D
     Route: 058
     Dates: start: 20060101, end: 20090921
  4. METFORMIN HCL [Concomitant]
     Indication: TYPE 2 DIABETES MELLITUS
     Dosage: 1000 MG, 2/D
     Route: 048
     Dates: start: 19920101, end: 20090804
  5. LANTUS [Concomitant]
     Indication: TYPE 2 DIABETES MELLITUS
     Dosage: UNK, 2/D
  6. ZOCOR [Concomitant]
     Indication: BLOOD CHOLESTEROL INCREASED
     Dosage: 5 MG, DAILY (1/D)
     Route: 048
  7. SYNTHROID [Concomitant]
     Dosage: UNK, DAILY (1/D)
     Route: 048
  8. VASOTEC [Concomitant]
     Indication: BLOOD PRESSURE INCREASED
     Dosage: 20 MG, DAILY (1/D)
     Route: 048

REACTIONS (26)
  - BALANCE DISORDER [None]
  - BLOOD CREATININE INCREASED [None]
  - BLOOD GLUCOSE DECREASED [None]
  - BLOOD GLUCOSE INCREASED [None]
  - BLOOD POTASSIUM INCREASED [None]
  - BRAIN NEOPLASM BENIGN [None]
  - DEVICE MISUSE [None]
  - DRUG INEFFECTIVE [None]
  - FACE INJURY [None]
  - FACIAL PAIN [None]
  - FALL [None]
  - FEELING ABNORMAL [None]
  - HAEMORRHAGE [None]
  - HEADACHE [None]
  - HEPATIC FUNCTION ABNORMAL [None]
  - MOUTH INJURY [None]
  - MUSCLE SPASMS [None]
  - MYALGIA [None]
  - NAUSEA [None]
  - OFF LABEL USE [None]
  - RENAL IMPAIRMENT [None]
  - SCAR [None]
  - TOOTH INFECTION [None]
  - TOOTH INJURY [None]
  - TOOTHACHE [None]
  - WEIGHT DECREASED [None]
